FAERS Safety Report 5669377-3 (Version None)
Quarter: 2008Q1

REPORT INFORMATION
  Report Type: 
  Country: None (occurrence: None)
  Receive Date: 20080317
  Receipt Date: 20080306
  Transmission Date: 20080703
  Serious: Yes (Hospitalization, Other)
  Sender: FDA-Public Use
  Company Number: PHHY2008CA01681

PATIENT
  Age: 75 Year
  Sex: Male

DRUGS (4)
  1. ZYPREXA [Concomitant]
     Dosage: 7.5 MG DAILY
  2. EFFEXOR [Concomitant]
  3. EXELON [Suspect]
     Indication: DEMENTIA ALZHEIMER'S TYPE
     Dosage: 12 MG/DAY
     Route: 048
     Dates: start: 20070726
  4. EXELON [Suspect]
     Dosage: 3 MG, BID

REACTIONS (13)
  - ARRHYTHMIA [None]
  - ASTHENIA [None]
  - ATRIAL FIBRILLATION [None]
  - ATRIOVENTRICULAR BLOCK FIRST DEGREE [None]
  - DELIRIUM [None]
  - DIZZINESS [None]
  - HEART RATE DECREASED [None]
  - HEART RATE IRREGULAR [None]
  - HYPOTENSION [None]
  - MUSCULAR WEAKNESS [None]
  - SUPRAVENTRICULAR EXTRASYSTOLES [None]
  - TRANSIENT ISCHAEMIC ATTACK [None]
  - TREATMENT NONCOMPLIANCE [None]
